FAERS Safety Report 7262300-X (Version None)
Quarter: 2011Q1

REPORT INFORMATION
  Report Type: 
  Country: None (occurrence: None)
  Receive Date: 20110130
  Receipt Date: 20101124
  Transmission Date: 20110831
  Serious: No
  Sender: FDA-Public Use
  Company Number: US-ABBOTT-10P-163-0687752-00

PATIENT
  Sex: Female
  Weight: 83.082 kg

DRUGS (11)
  1. TEA [Concomitant]
     Indication: PRODUCT USED FOR UNKNOWN INDICATION
     Dosage: 1.5 SERVING A DAY
     Route: 048
     Dates: start: 20080304, end: 20081120
  2. PEPSI [Concomitant]
     Indication: BLOOD CAFFEINE
     Route: 048
     Dates: start: 20080301, end: 20081120
  3. FAMOTIDINE [Concomitant]
     Indication: ANTACID THERAPY
     Dosage: 4.5 TOTAL
     Route: 048
     Dates: start: 20081101, end: 20081120
  4. DIMETAPP [Concomitant]
     Indication: NASOPHARYNGITIS
     Route: 048
     Dates: start: 20080901, end: 20080905
  5. TYLENOL EXTRA STRENGTH [Concomitant]
     Indication: CARPAL TUNNEL SYNDROME
     Dosage: 3.5 A WEEK
     Route: 048
     Dates: start: 20080303, end: 20081120
  6. WOMEN ONE A DAY [Concomitant]
     Indication: VITAMIN SUPPLEMENTATION
     Route: 048
     Dates: start: 20080217, end: 20080303
  7. COFFEE [Concomitant]
     Route: 048
     Dates: start: 20080304, end: 20081120
  8. MAALOX [Concomitant]
     Indication: ANTACID THERAPY
     Dosage: 8.5 A WEEK
     Route: 048
     Dates: start: 20080901, end: 20081120
  9. HUMIRA [Suspect]
     Indication: CROHN'S DISEASE
     Dates: start: 20080217, end: 20081120
  10. PRENATAL VITAMINS [Concomitant]
     Indication: PRODUCT USED FOR UNKNOWN INDICATION
     Route: 048
     Dates: start: 20080304, end: 20081120
  11. COFFEE [Concomitant]
     Indication: PRODUCT USED FOR UNKNOWN INDICATION
     Route: 048
     Dates: start: 20080217, end: 20080303

REACTIONS (3)
  - NAUSEA [None]
  - ABDOMINAL PAIN [None]
  - RESPIRATORY TRACT INFECTION [None]
